FAERS Safety Report 5570876-3 (Version None)
Quarter: 2007Q4

REPORT INFORMATION
  Report Type: 
  Country: None (occurrence: None)
  Receive Date: 20071221
  Receipt Date: 20071218
  Transmission Date: 20080405
  Serious: Yes (Death, Hospitalization)
  Sender: FDA-Public Use
  Company Number: CH-AVENTIS-200720856GDDC

PATIENT
  Age: 31 Year
  Sex: Female
  Weight: 42.2 kg

DRUGS (2)
  1. EFLORNITHINE [Suspect]
     Route: 042
     Dates: start: 20071115, end: 20071116
  2. NIFURTIMOX [Suspect]
     Route: 048
     Dates: start: 20071115, end: 20071116

REACTIONS (3)
  - DEATH [None]
  - HEADACHE [None]
  - VOMITING [None]
